FAERS Safety Report 4439160-5 (Version None)
Quarter: 2004Q3

REPORT INFORMATION
  Report Type: 
  Country: None (occurrence: None)
  Receive Date: 20040831
  Receipt Date: 20040825
  Transmission Date: 20050211
  Serious: Yes (Hospitalization)
  Sender: FDA-Public Use
  Company Number: 04-08-1221

PATIENT
  Age: 73 Year
  Sex: Female

DRUGS (1)
  1. CLOZAPINE [Suspect]
     Indication: PARKINSON'S DISEASE
     Dosage: 50-75MG QD ORAL
     Route: 048
     Dates: start: 20040101, end: 20040801

REACTIONS (2)
  - PNEUMONIA [None]
  - URINARY TRACT INFECTION [None]
